FAERS Safety Report 6785324-5 (Version None)
Quarter: 2010Q2

REPORT INFORMATION
  Report Type: 
  Country: None (occurrence: None)
  Receive Date: 20100623
  Receipt Date: 20100614
  Transmission Date: 20101027
  Serious: Yes (Other)
  Sender: FDA-Public Use
  Company Number: US-BIOGENIDEC-2010BI018696

PATIENT
  Age: 47 Year
  Sex: Female

DRUGS (2)
  1. AVONEX [Suspect]
     Indication: MULTIPLE SCLEROSIS
     Route: 030
     Dates: start: 20050811, end: 20080901
  2. AVONEX [Suspect]
     Route: 030
     Dates: start: 20100609

REACTIONS (4)
  - HYPERTENSION [None]
  - NEURALGIA [None]
  - PAIN [None]
  - THYROID CANCER [None]
